FAERS Safety Report 7487036 (Version 11)
Quarter: 2013Q1

REPORT INFORMATION
  Report Type: Spontaneous
  Country: CA (occurrence: CA)
  Receive Date: 20100719
  Receipt Date: 20130212
  Transmission Date: 20140127
  Serious: Yes (Hospitalization, Other)
  Sender: FDA-Public Use
  Company Number: PHHY2010CA44946

PATIENT
  Sex: Female

DRUGS (6)
  1. SANDOSTATIN [Suspect]
     Indication: PANCREATITIS CHRONIC
     Dosage: THREE TIMES A DAY
     Route: 058
     Dates: start: 20100628
  2. SANDOSTATIN [Suspect]
     Dosage: UNK UKN, UNK
     Dates: start: 20100726
  3. SANDOSTATIN LAR [Suspect]
     Indication: PANCREATITIS CHRONIC
     Dosage: 20 MG, MONTHLY
     Route: 030
     Dates: start: 20100628, end: 20101222
  4. SANDOSTATIN LAR [Suspect]
     Dosage: 10 MG, EVERY 4 WEEKS
     Route: 030
  5. SANDOSTATIN LAR [Suspect]
     Dosage: 10 MG, ONCE IN A MONTH
     Route: 030
  6. METFORMIN [Concomitant]
     Indication: TYPE 2 DIABETES MELLITUS
     Dosage: 500 MG, TID

REACTIONS (23)
  - Body temperature increased [Unknown]
  - Irritable bowel syndrome [Unknown]
  - Abdominal pain [Unknown]
  - Hypophagia [Recovering/Resolving]
  - Hot flush [Not Recovered/Not Resolved]
  - Feeling hot [Not Recovered/Not Resolved]
  - Erythema [Not Recovered/Not Resolved]
  - Malaise [Not Recovered/Not Resolved]
  - Anaemia [Unknown]
  - Asthenia [Not Recovered/Not Resolved]
  - Abdominal pain upper [Recovering/Resolving]
  - Dizziness [Recovering/Resolving]
  - Nausea [Not Recovered/Not Resolved]
  - Arrhythmia [Recovered/Resolved]
  - Headache [Unknown]
  - Fatigue [Unknown]
  - Reading disorder [Unknown]
  - Nasopharyngitis [Unknown]
  - Oropharyngeal pain [Unknown]
  - Neck pain [Unknown]
  - Cough [Unknown]
  - Dyspnoea [Unknown]
  - Diarrhoea [Unknown]
